FAERS Safety Report 16528915 (Version 2)
Quarter: 2019Q3

REPORT INFORMATION
  Report Type: Spontaneous
  Country: GB (occurrence: GB)
  Receive Date: 20190703
  Receipt Date: 20190826
  Transmission Date: 20191004
  Serious: Yes (Other)
  Sender: FDA-Public Use
  Company Number: PHHY2019GB151358

PATIENT
  Age: 79 Year
  Sex: Female

DRUGS (7)
  1. ROSUVASTATIN. [Suspect]
     Active Substance: ROSUVASTATIN
     Indication: BLOOD CHOLESTEROL ABNORMAL
     Dosage: 20 MG, UNK
     Route: 065
  2. PRALUENT [Suspect]
     Active Substance: ALIROCUMAB
     Indication: TYPE IIA HYPERLIPIDAEMIA
     Dosage: 75 MG, BID
     Route: 065
     Dates: start: 201811, end: 20190430
  3. COCODAMOL [Concomitant]
     Active Substance: ACETAMINOPHEN\CODEINE PHOSPHATE
     Indication: PAIN
     Dosage: UNK
     Route: 065
  4. CARDIDE SR [Concomitant]
     Indication: BLOOD PRESSURE ABNORMAL
     Dosage: 5 MG, UNK (1-5 MG)
     Route: 065
  5. DISPERIN [Concomitant]
     Indication: CARDIAC DISORDER
     Dosage: 75 MG, UNK
     Route: 065
  6. DISPERIN [Concomitant]
     Indication: ANTICOAGULANT THERAPY
  7. EZETIMIBE. [Suspect]
     Active Substance: EZETIMIBE
     Indication: BLOOD CHOLESTEROL ABNORMAL
     Dosage: 10 MG, UNK
     Route: 065

REACTIONS (5)
  - Lethargy [Recovered/Resolved]
  - Gastric ulcer [Recovered/Resolved]
  - Depressed mood [Not Recovered/Not Resolved]
  - Depression [Not Recovered/Not Resolved]
  - Insomnia [Recovered/Resolved]

NARRATIVE: CASE EVENT DATE: 201904
